FAERS Safety Report 6272097-8 (Version None)
Quarter: 2009Q3

REPORT INFORMATION
  Report Type: 
  Country: None (occurrence: None)
  Receive Date: 20090717
  Receipt Date: 20090706
  Transmission Date: 20100115
  Serious: Yes (Other)
  Sender: FDA-Public Use
  Company Number: B0582824A

PATIENT
  Age: 16 Year
  Sex: Male

DRUGS (1)
  1. ATRIANCE [Suspect]
     Route: 042

REACTIONS (4)
  - CHOLESTASIS [None]
  - HEPATOCELLULAR INJURY [None]
  - JAUNDICE [None]
  - NEUROPATHY PERIPHERAL [None]
